FAERS Safety Report 9420443 (Version 1)
Quarter: 2013Q3

REPORT INFORMATION
  Report Type: Spontaneous
  Country: IR (occurrence: None)
  Receive Date: 20130723
  Receipt Date: 20130723
  Transmission Date: 20140515
  Serious: Yes (Other)
  Sender: FDA-Public Use
  Company Number: 2013P1012893

PATIENT
  Sex: 0

DRUGS (2)
  1. CIPROFLOXACIN [Suspect]
  2. IMIPENEM [Suspect]

REACTIONS (3)
  - Convulsion [None]
  - Cardio-respiratory arrest [None]
  - Drug interaction [None]
